FAERS Safety Report 18498067 (Version 1)
Quarter: 2020Q4

REPORT INFORMATION
  Report Type: Spontaneous
  Country: US (occurrence: US)
  Receive Date: 20201112
  Receipt Date: 20201112
  Transmission Date: 20210114
  Serious: Yes (Other)
  Sender: FDA-Public Use
  Company Number: US-PFIZER INC-2020443734

PATIENT
  Age: 61 Year
  Sex: Female
  Weight: 67.13 kg

DRUGS (1)
  1. PREMARIN [Suspect]
     Active Substance: ESTROGENS, CONJUGATED
     Indication: VULVOVAGINAL DRYNESS
     Dosage: UNK, 2X/WEEK (TWICE A WEEK AT NIGHT)
     Route: 067
     Dates: start: 2007

REACTIONS (3)
  - Oestradiol abnormal [Unknown]
  - Pituitary tumour benign [Unknown]
  - Blood growth hormone abnormal [Unknown]

NARRATIVE: CASE EVENT DATE: 202009
